FAERS Safety Report 5793600-8 (Version None)
Quarter: 2008Q2

REPORT INFORMATION
  Report Type: 
  Country: None (occurrence: None)
  Receive Date: 20080627
  Receipt Date: 20080612
  Transmission Date: 20081010
  Serious: Yes (Hospitalization)
  Sender: FDA-Public Use
  Company Number: PHHY2008SG10490

PATIENT
  Age: 29 Year
  Sex: Male

DRUGS (1)
  1. TEGRETOL [Suspect]
     Indication: FACIAL PALSY
     Dosage: 200 MG, QD
     Route: 048
     Dates: start: 20020807

REACTIONS (5)
  - BLISTER [None]
  - EPIDERMOLYSIS [None]
  - ORAL DISORDER [None]
  - PURPURA [None]
  - RASH MACULAR [None]
